FAERS Safety Report 9888600 (Version 3)
Quarter: 2014Q3

REPORT INFORMATION
  Report Type: Spontaneous
  Country: US (occurrence: US)
  Receive Date: 20140211
  Receipt Date: 20140703
  Transmission Date: 20150326
  Serious: Yes (Other)
  Sender: FDA-Public Use
  Company Number: US-ELI_LILLY_AND_COMPANY-US_0502111608

PATIENT
  Age: 60 Year
  Sex: Male

DRUGS (3)
  1. GEMZAR [Suspect]
     Active Substance: GEMCITABINE HYDROCHLORIDE
     Indication: BLADDER CANCER
     Dosage: UNK, UNKNOWN
     Route: 042
     Dates: start: 199704
  2. RADIATION THERAPY [Concomitant]
     Active Substance: RADIATION THERAPY
     Indication: BLADDER CANCER
     Dosage: 45 UNK, OTHER
     Dates: end: 199703
  3. CISPLATIN. [Concomitant]
     Active Substance: CISPLATIN
     Indication: BLADDER CANCER
     Dosage: UNK, UNKNOWN
     Dates: start: 199704

REACTIONS (1)
  - Radiation injury [Recovered/Resolved with Sequelae]

NARRATIVE: CASE EVENT DATE: 199707
